FAERS Safety Report 4803068-3 (Version None)
Quarter: 2005Q4

REPORT INFORMATION
  Report Type: 
  Country: None (occurrence: None)
  Receive Date: 20051013
  Receipt Date: 20050928
  Transmission Date: 20060501
  Serious: Yes (Hospitalization)
  Sender: FDA-Public Use
  Company Number: USA0509109417

PATIENT
  Age: 58 Year
  Sex: Female

DRUGS (1)
  1. FORTEO [Suspect]
     Dates: start: 20050910, end: 20050926

REACTIONS (3)
  - HUMERUS FRACTURE [None]
  - TRAUMATIC FRACTURE [None]
  - TREATMENT NONCOMPLIANCE [None]
